FAERS Safety Report 9164984 (Version 1)
Quarter: 2013Q1

REPORT INFORMATION
  Report Type: Spontaneous
  Country: US (occurrence: None)
  Receive Date: 20130228
  Receipt Date: 20130228
  Transmission Date: 20140127
  Serious: Yes (Other)
  Sender: FDA-Public Use
  Company Number: ADR-2013-000317

PATIENT
  Age: 14 Year
  Sex: Male

DRUGS (2)
  1. BACLOFEN INTRATHECAL [Suspect]
     Indication: MUSCLE SPASTICITY
     Dosage: 22-1400MCG/DAY
  2. OXCARBAZAPINE [Concomitant]

REACTIONS (4)
  - Blood pressure increased [None]
  - Tachycardia [None]
  - Drug withdrawal syndrome [None]
  - Device malfunction [None]
